FAERS Safety Report 16182594 (Version 2)
Quarter: 2019Q2

REPORT INFORMATION
  Report Type: Spontaneous
  Country: US (occurrence: US)
  Receive Date: 20190411
  Receipt Date: 20190419
  Transmission Date: 20190711
  Serious: No
  Sender: FDA-Public Use
  Company Number: US-009507513-1903USA009592

PATIENT
  Age: 17 Year
  Sex: Female
  Weight: 46.26 kg

DRUGS (1)
  1. NEXPLANON [Suspect]
     Active Substance: ETONOGESTREL
     Dosage: 68 MG, IN THE UPPER ARM
     Dates: start: 201806

REACTIONS (5)
  - Complication associated with device [Unknown]
  - Device deployment issue [Unknown]
  - Menstruation irregular [Unknown]
  - Polymenorrhoea [Unknown]
  - Complication of device removal [Unknown]

NARRATIVE: CASE EVENT DATE: 201806
